FAERS Safety Report 8912101 (Version 1)
Quarter: 2012Q4

REPORT INFORMATION
  Report Type: 
  Country: US (occurrence: US)
  Receive Date: 20121115
  Receipt Date: 20121115
  Transmission Date: 20130627
  Serious: Yes (Other)
  Sender: FDA-Public Use
  Company Number: US-TEVA-369885USA

PATIENT
  Sex: Female

DRUGS (1)
  1. TAMOXIFEN [Suspect]

REACTIONS (3)
  - Breast cancer metastatic [Unknown]
  - Lung neoplasm malignant [Unknown]
  - Drug ineffective [Unknown]
